FAERS Safety Report 5946490-4 (Version None)
Quarter: 2008Q4

REPORT INFORMATION
  Report Type: 
  Country: None (occurrence: None)
  Receive Date: 20081110
  Receipt Date: 20081107
  Transmission Date: 20090506
  Serious: Yes (Hospitalization)
  Sender: FDA-Public Use
  Company Number: A0755491A

PATIENT
  Age: 53 Year
  Sex: Female
  Weight: 53 kg

DRUGS (5)
  1. SERETIDE DISKUS [Suspect]
     Indication: ASTHMA
     Dosage: 1PUFF TWICE PER DAY
     Route: 055
     Dates: start: 19980101
  2. ACETYLCYSTEINE [Concomitant]
     Dates: start: 20030101
  3. AMOXICILLIN [Concomitant]
     Dates: start: 20080929, end: 20081029
  4. BRONDILAT [Concomitant]
     Indication: COUGH
     Dates: start: 20081023
  5. TEQUIN [Concomitant]
     Dates: start: 20040101

REACTIONS (1)
  - ASTHMA [None]
